FAERS Safety Report 8106309-2 (Version None)
Quarter: 2012Q1

REPORT INFORMATION
  Report Type: 
  Country: None (occurrence: None)
  Receive Date: 20120202
  Receipt Date: 20120120
  Transmission Date: 20120608
  Serious: Yes (Hospitalization)
  Sender: FDA-Public Use
  Company Number: US-JNJFOC-20120109742

PATIENT
  Sex: Female
  Weight: 72.58 kg

DRUGS (1)
  1. REMICADE [Suspect]
     Indication: ARTHRITIS
     Route: 042

REACTIONS (6)
  - CATARACT OPERATION [None]
  - JOINT SWELLING [None]
  - EYELID PTOSIS [None]
  - VISUAL IMPAIRMENT [None]
  - ARTHROPATHY [None]
  - WEIGHT BEARING DIFFICULTY [None]
